FAERS Safety Report 6192720-6 (Version None)
Quarter: 2009Q2

REPORT INFORMATION
  Report Type: 
  Country: None (occurrence: None)
  Receive Date: 20090514
  Receipt Date: 20090501
  Transmission Date: 20091009
  Serious: Yes (Hospitalization)
  Sender: FDA-Public Use
  Company Number: 2008-181679-NL

PATIENT
  Age: 26 Year
  Sex: Female
  Weight: 83.9 kg

DRUGS (3)
  1. NUVARING [Suspect]
     Indication: CONTRACEPTION
     Dosage: NI, 3 WEEKS IN / 1 WEEK OUT
     Dates: start: 20030601, end: 20071022
  2. ALBUTEROL [Concomitant]
  3. ATROVENT [Concomitant]

REACTIONS (8)
  - ACQUIRED DIAPHRAGMATIC EVENTRATION [None]
  - ATELECTASIS [None]
  - CONSTIPATION [None]
  - FIBRIN D DIMER INCREASED [None]
  - LUNG CONSOLIDATION [None]
  - PANIC ATTACK [None]
  - PULMONARY EMBOLISM [None]
  - PULMONARY INFARCTION [None]
